FAERS Safety Report 15713534 (Version 1)
Quarter: 2018Q4

REPORT INFORMATION
  Report Type: Spontaneous
  Country: US (occurrence: US)
  Receive Date: 20181129
  Receipt Date: 20181129
  Transmission Date: 20190205
  Serious: Yes (Other)
  Sender: FDA-Public Use
  Company Number: None

PATIENT
  Age: 76 Year
  Sex: Female
  Weight: 81.65 kg

DRUGS (1)
  1. DOMPERIDONE 10MG [Suspect]
     Active Substance: DOMPERIDONE
     Indication: IMPAIRED GASTRIC EMPTYING
     Route: 048
     Dates: start: 20170807, end: 20181004

REACTIONS (6)
  - Myocardial ischaemia [None]
  - Condition aggravated [None]
  - Ventricular extrasystoles [None]
  - Supraventricular extrasystoles [None]
  - Angina pectoris [None]
  - Coronary artery disease [None]

NARRATIVE: CASE EVENT DATE: 20181004
